FAERS Safety Report 7102900-0 (Version None)
Quarter: 2010Q4

REPORT INFORMATION
  Report Type: 
  Country: None (occurrence: None)
  Receive Date: 20101115
  Receipt Date: 20101108
  Transmission Date: 20110411
  Serious: Yes (Life-Threatening)
  Sender: FDA-Public Use
  Company Number: US-JNJFOC-20101103602

PATIENT
  Sex: Female
  Weight: 72.58 kg

DRUGS (11)
  1. PANCREAZE [Suspect]
     Indication: PANCREATIC INSUFFICIENCY
     Route: 048
  2. PLAVIX [Concomitant]
     Indication: CARDIAC DISORDER
     Route: 048
  3. ATENOLOL [Concomitant]
     Indication: BLOOD PRESSURE ABNORMAL
     Route: 048
  4. DILTIAZEM [Concomitant]
     Indication: CARDIAC DISORDER
     Route: 048
  5. LEVOTHYROXINE [Concomitant]
     Route: 048
  6. LOPID [Concomitant]
     Indication: BLOOD CHOLESTEROL ABNORMAL
     Route: 048
  7. ALPRAZOLAM [Concomitant]
     Indication: ANXIETY
     Route: 048
  8. HUMULIN R [Concomitant]
     Indication: TYPE 2 DIABETES MELLITUS
     Route: 058
  9. HUMULIN N [Concomitant]
     Indication: TYPE 2 DIABETES MELLITUS
     Route: 058
  10. DICYCLOMINE [Concomitant]
     Indication: IRRITABLE BOWEL SYNDROME
     Route: 048
  11. CHOLESTYRAMINE [Concomitant]
     Route: 048

REACTIONS (3)
  - BACK PAIN [None]
  - DRUG INEFFECTIVE [None]
  - PAIN IN EXTREMITY [None]
